FAERS Safety Report 21208260 (Version 1)
Quarter: 2022Q3

REPORT INFORMATION
  Report Type: Spontaneous
  Country: US (occurrence: None)
  Receive Date: 20220811
  Receipt Date: 20220811
  Transmission Date: 20221027
  Serious: No
  Sender: FDA-Public Use
  Company Number: None

PATIENT
  Age: 83 Year
  Sex: Female

DRUGS (1)
  1. HUMIRA [Suspect]
     Active Substance: ADALIMUMAB
     Dosage: OTHER FREQUENCY : OTHER;?
     Route: 058

REACTIONS (7)
  - Goitre [None]
  - Neoplasm [None]
  - Dysphagia [None]
  - Stomatitis [None]
  - Oral pain [None]
  - Headache [None]
  - Swelling [None]

NARRATIVE: CASE EVENT DATE: 20220730
